FAERS Safety Report 4370631-6 (Version None)
Quarter: 2004Q2

REPORT INFORMATION
  Report Type: 
  Country: None (occurrence: None)
  Receive Date: 20040525
  Receipt Date: 20040518
  Transmission Date: 20050107
  Serious: Yes (Disabling)
  Sender: FDA-Public Use
  Company Number: 04H-163-0261193-00

PATIENT
  Age: 75 Year
  Sex: Male
  Weight: 78 kg

DRUGS (10)
  1. HEPARIN SODIUM INJECTION (HEPARIN SODIUM) (HEPARIN SODUM) [Suspect]
     Indication: THROMBOSIS PROPHYLAXIS
  2. DIAZEPAM [Concomitant]
  3. XYLOCAINE W/ EPINEPHRINE [Concomitant]
  4. BUPIVACAINE [Concomitant]
  5. FENTANYL [Concomitant]
  6. ETOMIDATE [Concomitant]
  7. PANCURONIUM [Concomitant]
  8. ISOFLURANE [Concomitant]
  9. OXYGEN [Concomitant]
  10. NITROUS OXIDE [Concomitant]

REACTIONS (6)
  - EXTRADURAL HAEMATOMA [None]
  - GRAFT THROMBOSIS [None]
  - MEDICATION ERROR [None]
  - PARAPLEGIA [None]
  - PERIPHERAL EMBOLISM [None]
  - PROCEDURAL SITE REACTION [None]
